FAERS Safety Report 5283422-9 (Version None)
Quarter: 2007Q2

REPORT INFORMATION
  Report Type: 
  Country: None (occurrence: None)
  Receive Date: 20070402
  Receipt Date: 20070308
  Transmission Date: 20071010
  Serious: Yes (Other)
  Sender: FDA-Public Use
  Company Number: NO-JNJFOC-20070306114

PATIENT
  Sex: Male

DRUGS (20)
  1. HALDOL [Suspect]
     Indication: SCHIZOAFFECTIVE DISORDER
     Route: 065
  2. RISPERDAL CONSTA [Suspect]
     Route: 065
  3. RISPERDAL CONSTA [Suspect]
     Route: 065
  4. RISPERDAL CONSTA [Suspect]
     Indication: SCHIZOAFFECTIVE DISORDER
     Route: 065
  5. ZYPREXA [Suspect]
     Route: 065
  6. ZYPREXA [Suspect]
     Route: 065
  7. ZYPREXA [Suspect]
     Indication: DRUG USE FOR UNKNOWN INDICATION
     Route: 065
  8. CISORDINOL DEPOT [Suspect]
     Route: 065
  9. CISORDINOL DEPOT [Suspect]
     Indication: DRUG USE FOR UNKNOWN INDICATION
     Route: 065
  10. ACINETON [Suspect]
     Route: 065
  11. ACINETON [Suspect]
     Indication: DRUG USE FOR UNKNOWN INDICATION
     Route: 065
  12. ZOLOFT [Concomitant]
     Route: 065
  13. ORFIRIL ENTERO [Concomitant]
     Dosage: NOT CONTINIOUSLY
     Route: 065
  14. ORFIRIL ENTERO [Concomitant]
     Route: 065
  15. ZELDOX [Concomitant]
     Route: 065
  16. ZELDOX [Concomitant]
     Route: 065
  17. LARGACTIL [Concomitant]
     Route: 065
  18. MEDROL [Concomitant]
     Route: 065
  19. TRILAFON [Concomitant]
     Route: 065
  20. TRILAFON [Concomitant]
     Route: 065

REACTIONS (12)
  - AMNESIA [None]
  - BRAIN NEOPLASM MALIGNANT [None]
  - CHILLS [None]
  - CHOKING SENSATION [None]
  - DENTAL EXAMINATION ABNORMAL [None]
  - HYPERTENSION [None]
  - HYPERTRICHOSIS [None]
  - LIVER INJURY [None]
  - MUSCLE SPASMS [None]
  - MUSCULAR WEAKNESS [None]
  - URINARY INCONTINENCE [None]
  - WEIGHT INCREASED [None]
